FAERS Safety Report 20397564 (Version 2)
Quarter: 2022Q1

REPORT INFORMATION
  Report Type: Spontaneous
  Country: US (occurrence: US)
  Receive Date: 20220131
  Receipt Date: 20220201
  Transmission Date: 20220423
  Serious: No
  Sender: FDA-Public Use
  Company Number: US-ABBVIE-21K-163-3725501-00

PATIENT
  Age: 69 Year
  Sex: Female
  Weight: 73.548 kg

DRUGS (3)
  1. HUMIRA [Suspect]
     Active Substance: ADALIMUMAB
     Indication: Ankylosing spondylitis
     Route: 058
     Dates: start: 20201118
  2. CLONAZEPAM [Concomitant]
     Active Substance: CLONAZEPAM
     Indication: Dystonic tremor
  3. CLONAZEPAM [Concomitant]
     Active Substance: CLONAZEPAM
     Indication: Essential tremor

REACTIONS (8)
  - Product administration error [Recovered/Resolved]
  - Osteoarthritis [Recovering/Resolving]
  - Musculoskeletal stiffness [Not Recovered/Not Resolved]
  - Fibromyalgia [Recovering/Resolving]
  - Injection site rash [Recovering/Resolving]
  - Drug ineffective [Not Recovered/Not Resolved]
  - Pain [Not Recovered/Not Resolved]
  - Liquid product physical issue [Recovered/Resolved]

NARRATIVE: CASE EVENT DATE: 20201101
